FAERS Safety Report 23151940 (Version 1)
Quarter: 2023Q4

REPORT INFORMATION
  Report Type: Report from Study
  Country: GB (occurrence: GB)
  Receive Date: 20231107
  Receipt Date: 20231107
  Transmission Date: 20240110
  Serious: Yes (Hospitalization)
  Sender: FDA-Public Use
  Company Number: GB-ABBVIE-5478828

PATIENT
  Age: 69 Year
  Sex: Male

DRUGS (11)
  1. SKYRIZI [Suspect]
     Active Substance: RISANKIZUMAB-RZAA
     Indication: Psoriasis
     Route: 058
     Dates: start: 20221213
  2. GLICLAZIDE-80 [Concomitant]
     Indication: Product used for unknown indication
     Dates: start: 20070920
  3. IVERMECTINE EG [Concomitant]
     Indication: Product used for unknown indication
     Dates: start: 20191118
  4. NITROFURANTOIN [Concomitant]
     Active Substance: NITROFURANTOIN
     Indication: Product used for unknown indication
     Dates: start: 20230915, end: 20230927
  5. SIMVASTATIN [Concomitant]
     Active Substance: SIMVASTATIN
     Indication: Product used for unknown indication
     Dates: start: 20160504
  6. Hydromol [Concomitant]
     Indication: Product used for unknown indication
     Dates: start: 20140911
  7. BETNOVATE [Concomitant]
     Active Substance: BETAMETHASONE
     Indication: Product used for unknown indication
     Dates: start: 20200513
  8. METFORMIN [Concomitant]
     Active Substance: METFORMIN HYDROCHLORIDE
     Indication: Product used for unknown indication
     Dates: start: 20220816
  9. BETAMETHASONE\CALCIPOTRIENE [Concomitant]
     Active Substance: BETAMETHASONE\CALCIPOTRIENE
     Indication: Product used for unknown indication
     Dates: start: 20171220
  10. Sitagliptina pasteur [Concomitant]
     Indication: Product used for unknown indication
     Dates: start: 20211213
  11. ENSTILAR [Concomitant]
     Active Substance: BETAMETHASONE DIPROPIONATE\CALCIPOTRIENE HYDRATE
     Indication: Product used for unknown indication
     Dates: start: 20191118

REACTIONS (2)
  - COVID-19 [Unknown]
  - Urosepsis [Unknown]

NARRATIVE: CASE EVENT DATE: 20230822
